FAERS Safety Report 21608084 (Version 1)
Quarter: 2022Q4

REPORT INFORMATION
  Report Type: Other
  Country: GB (occurrence: GB)
  Receive Date: 20221117
  Receipt Date: 20221117
  Transmission Date: 20230113
  Serious: Yes (Hospitalization)
  Sender: FDA-Public Use
  Company Number: None

PATIENT
  Age: 4 Year
  Sex: Male
  Weight: 14 kg

DRUGS (3)
  1. PREDNISOLONE [Suspect]
     Active Substance: PREDNISOLONE
     Indication: Adverse drug reaction
     Dosage: 15 MILLIGRAM  (TABLET)(15MG ONCE A DAY IN MORNING)
     Route: 065
     Dates: start: 20220223, end: 20220228
  2. PREDNISOLONE [Suspect]
     Active Substance: PREDNISOLONE
     Indication: Eczema
  3. METHOTREXATE [Suspect]
     Active Substance: METHOTREXATE
     Indication: Eczema
     Dosage: UNK
     Route: 065

REACTIONS (4)
  - Dermatitis atopic [Not Recovered/Not Resolved]
  - Medication error [Unknown]
  - Infection [Unknown]
  - Drug ineffective for unapproved indication [Unknown]

NARRATIVE: CASE EVENT DATE: 20220301
